FAERS Safety Report 11654733 (Version 8)
Quarter: 2018Q3

REPORT INFORMATION
  Report Type: Report from Study
  Country: IT (occurrence: IT)
  Receive Date: 20151023
  Receipt Date: 20180709
  Transmission Date: 20181010
  Serious: Yes (Hospitalization, Other)
  Sender: FDA-Public Use
  Company Number: IT-PFIZER INC-2015346776

PATIENT
  Age: 68 Year
  Sex: Female

DRUGS (12)
  1. FLUOROURACIL. [Suspect]
     Active Substance: FLUOROURACIL
     Indication: COLON CANCER METASTATIC
     Dosage: 560 MG, CYCLIC
     Route: 040
     Dates: start: 20150826, end: 20150826
  2. ZALTRAP [Suspect]
     Active Substance: ZIV-AFLIBERCEPT
     Dosage: 220 MG, CYCLIC
     Route: 041
     Dates: start: 20150909, end: 20150909
  3. FLUOROURACIL. [Suspect]
     Active Substance: FLUOROURACIL
     Dosage: 4000 MG, CYCLIC
     Route: 041
     Dates: start: 20150826, end: 20150826
  4. AFLIBERCEPT [Suspect]
     Active Substance: AFLIBERCEPT
     Dosage: 220 MG, CYCLIC
     Route: 042
     Dates: start: 20150909, end: 20150909
  5. IRINOTECAN HCL [Suspect]
     Active Substance: IRINOTECAN HYDROCHLORIDE
     Indication: COLORECTAL CANCER METASTATIC
     Dosage: 250 MG, CYCLIC
     Route: 041
     Dates: start: 20150826, end: 20150826
  6. IRINOTECAN HCL [Suspect]
     Active Substance: IRINOTECAN HYDROCHLORIDE
     Dosage: 250 MG, CYCLIC
     Route: 041
     Dates: start: 20150909, end: 20150909
  7. LEUCOVORIN /00566701/ [Suspect]
     Active Substance: LEUCOVORIN
     Indication: COLON CANCER METASTATIC
     Dosage: 280 MG, CYCLIC
     Route: 041
     Dates: start: 20150826, end: 20150826
  8. FLUOROURACIL. [Suspect]
     Active Substance: FLUOROURACIL
     Dosage: 560 MG, CYCLIC
     Route: 040
     Dates: start: 20150909, end: 20150909
  9. FLUOROURACIL. [Suspect]
     Active Substance: FLUOROURACIL
     Dosage: 3600 MG, CYCLIC
     Route: 041
     Dates: start: 20150909, end: 20150909
  10. AFLIBERCEPT [Suspect]
     Active Substance: AFLIBERCEPT
     Indication: COLORECTAL CANCER METASTATIC
     Dosage: 220 MG, CYCLIC
     Route: 042
     Dates: start: 20150826, end: 20150826
  11. ZALTRAP [Suspect]
     Active Substance: ZIV-AFLIBERCEPT
     Indication: COLON CANCER METASTATIC
     Dosage: 220 MG, CYCLIC
     Route: 041
     Dates: start: 20150826, end: 20150826
  12. LEUCOVORIN /00566701/ [Suspect]
     Active Substance: LEUCOVORIN
     Dosage: 280 MG, CYCLIC
     Route: 041
     Dates: start: 20150909, end: 20150909

REACTIONS (3)
  - Off label use [Unknown]
  - Hypertensive crisis [Recovered/Resolved]
  - Proteinuria [Recovered/Resolved]

NARRATIVE: CASE EVENT DATE: 20150918
